FAERS Safety Report 6630372-9 (Version None)
Quarter: 2010Q1

REPORT INFORMATION
  Report Type: 
  Country: None (occurrence: None)
  Receive Date: 20100311
  Receipt Date: 20090617
  Transmission Date: 20100710
  Serious: No
  Sender: FDA-Public Use
  Company Number: US-BIOGENIDEC-2009BI018583

PATIENT
  Age: 27 Year
  Sex: Female

DRUGS (2)
  1. AVONEX [Suspect]
     Indication: MULTIPLE SCLEROSIS
     Route: 030
     Dates: start: 20010401, end: 20050301
  2. AVONEX [Suspect]
     Route: 030
     Dates: start: 20070501

REACTIONS (3)
  - HOT FLUSH [None]
  - NASOPHARYNGITIS [None]
  - WEIGHT INCREASED [None]
